FAERS Safety Report 25381988 (Version 1)
Quarter: 2025Q2

REPORT INFORMATION
  Report Type: Spontaneous
  Country: FR (occurrence: FR)
  Receive Date: 20250531
  Receipt Date: 20250531
  Transmission Date: 20250716
  Serious: Yes (Hospitalization, Other)
  Sender: AUROBINDO
  Company Number: FR-STADA-252671

PATIENT
  Age: 64 Year
  Sex: Female
  Weight: 62 kg

DRUGS (11)
  1. CAPECITABINE [Suspect]
     Active Substance: CAPECITABINE
     Indication: Insulinoma
     Route: 065
     Dates: start: 202006, end: 20201213
  2. CAPECITABINE [Suspect]
     Active Substance: CAPECITABINE
     Indication: Neuroendocrine tumour
     Route: 065
     Dates: start: 202006, end: 202202
  3. CAPECITABINE [Suspect]
     Active Substance: CAPECITABINE
     Indication: Hypoglycaemia
  4. EVEROLIMUS [Suspect]
     Active Substance: EVEROLIMUS
     Indication: Insulinoma
     Route: 065
     Dates: start: 201708
  5. TEMOZOLOMIDE [Suspect]
     Active Substance: TEMOZOLOMIDE
     Indication: Insulinoma
     Route: 065
     Dates: start: 202006, end: 20201213
  6. TEMOZOLOMIDE [Suspect]
     Active Substance: TEMOZOLOMIDE
     Indication: Hypoglycaemia
     Route: 065
     Dates: start: 202006, end: 202202
  7. OCTREOTIDE [Concomitant]
     Active Substance: OCTREOTIDE
     Indication: Insulinoma
     Route: 065
     Dates: start: 201602, end: 201602
  8. PASIREOTIDE [Concomitant]
     Active Substance: PASIREOTIDE
     Indication: Insulinoma
     Dosage: 0.9 MILLIGRAM, TWO TIMES A DAY
     Route: 030
     Dates: start: 2020, end: 202012
  9. PASIREOTIDE [Concomitant]
     Active Substance: PASIREOTIDE
     Route: 030
     Dates: start: 202012
  10. SUNITINIB [Concomitant]
     Active Substance: SUNITINIB
     Indication: Insulinoma
     Route: 065
     Dates: start: 2017, end: 202006
  11. SUNITINIB [Concomitant]
     Active Substance: SUNITINIB
     Route: 065
     Dates: start: 201912, end: 202006

REACTIONS (2)
  - Thrombocytopenia [Recovering/Resolving]
  - Off label use [Unknown]

NARRATIVE: CASE EVENT DATE: 20170101
